FAERS Safety Report 7286129-1 (Version None)
Quarter: 2011Q1

REPORT INFORMATION
  Report Type: 
  Country: None (occurrence: None)
  Receive Date: 20110210
  Receipt Date: 20110204
  Transmission Date: 20110831
  Serious: Yes (Disabling, Other)
  Sender: FDA-Public Use
  Company Number: GB-PFIZER INC-2010159657

PATIENT
  Age: 55 Week
  Sex: Male
  Weight: 12.6 kg

DRUGS (1)
  1. REFACTO [Suspect]
     Indication: FACTOR VIII DEFICIENCY
     Dosage: 500 UNK, ALTERNATE DAY
     Route: 042
     Dates: start: 20101016

REACTIONS (1)
  - FACTOR VIII INHIBITION [None]
